FAERS Safety Report 14128866 (Version 2)
Quarter: 2017Q4

REPORT INFORMATION
  Report Type: Spontaneous
  Country: US (occurrence: US)
  Receive Date: 20171026
  Receipt Date: 20171106
  Transmission Date: 20180321
  Serious: Yes (Hospitalization, Other)
  Sender: FDA-Public Use
  Company Number: US-GLAXOSMITHKLINE-US2017GSK164366

PATIENT
  Age: 22 Year
  Sex: Female

DRUGS (2)
  1. NICOTINE. [Suspect]
     Active Substance: NICOTINE
     Indication: PRODUCT USED FOR UNKNOWN INDICATION
     Route: 062
  2. PITRESSIN [Interacting]
     Active Substance: VASOPRESSIN
     Indication: PRODUCT USED FOR UNKNOWN INDICATION
     Dosage: PARACERVICAL
     Route: 042

REACTIONS (8)
  - Hypotension [Unknown]
  - Drug interaction [Unknown]
  - Rhythm idioventricular [Unknown]
  - End-tidal CO2 decreased [Unknown]
  - Bradycardia [Unknown]
  - Heart rate increased [Unknown]
  - Myocardial ischaemia [Unknown]
  - Circulatory collapse [Unknown]
